FAERS Safety Report 16036996 (Version 1)
Quarter: 2019Q1

REPORT INFORMATION
  Report Type: Spontaneous
  Country: GR (occurrence: GR)
  Receive Date: 20190305
  Receipt Date: 20190305
  Transmission Date: 20190418
  Serious: Yes (Other)
  Sender: FDA-Public Use
  Company Number: GR-ASTRAZENECA-2019SE35556

PATIENT
  Sex: Female

DRUGS (9)
  1. FASLODEX [Suspect]
     Active Substance: FULVESTRANT
     Route: 030
  2. FEMARA [Concomitant]
     Active Substance: LETROZOLE
  3. XELODA [Concomitant]
     Active Substance: CAPECITABINE
  4. PALBOCICLIB [Concomitant]
     Active Substance: PALBOCICLIB
     Dosage: 75MG DOSE DAILY (EVERYDAY FOR 21 DAYS FOR A 28 DAYS^ CYCLE).
  5. XGEVA [Concomitant]
     Active Substance: DENOSUMAB
  6. ABRAXANE [Concomitant]
     Active Substance: PACLITAXEL
  7. ADRIAMYCIN [Concomitant]
     Active Substance: DOXORUBICIN HYDROCHLORIDE
     Dates: start: 201701
  8. PACLITAXEL. [Concomitant]
     Active Substance: PACLITAXEL
  9. CYCLOPHOSPHAMIDE. [Concomitant]
     Active Substance: CYCLOPHOSPHAMIDE
     Dates: start: 201701

REACTIONS (2)
  - Neutropenia [Unknown]
  - Malignant neoplasm progression [Unknown]
